FAERS Safety Report 15161469 (Version 1)
Quarter: 2018Q3

REPORT INFORMATION
  Report Type: Report from Study
  Country: US (occurrence: US)
  Receive Date: 20180718
  Receipt Date: 20180718
  Transmission Date: 20181010
  Serious: No
  Sender: FDA-Public Use
  Company Number: US-AMGEN-USASP2014008288

PATIENT
  Age: 70 Year
  Sex: Female

DRUGS (1)
  1. ENBREL [Suspect]
     Active Substance: ETANERCEPT
     Indication: PSORIASIS
     Dosage: 7.84 MG, QWK
     Route: 065
     Dates: start: 20130820

REACTIONS (8)
  - Injection site pruritus [Not Recovered/Not Resolved]
  - Abdominal discomfort [Recovered/Resolved]
  - Oesophageal spasm [Recovered/Resolved]
  - Abdominal pain [Recovered/Resolved]
  - Fungal infection [Recovered/Resolved]
  - Oropharyngeal pain [Recovered/Resolved]
  - Injection site mass [Not Recovered/Not Resolved]
  - Dysphagia [Recovered/Resolved]

NARRATIVE: CASE EVENT DATE: 201311
